FAERS Safety Report 6796105-0 (Version None)
Quarter: 2010Q2

REPORT INFORMATION
  Report Type: 
  Country: None (occurrence: None)
  Receive Date: 20100625
  Receipt Date: 20100614
  Transmission Date: 20101027
  Serious: Yes (Other)
  Sender: FDA-Public Use
  Company Number: FR-JNJFOC-20080302318

PATIENT
  Sex: Female
  Weight: 3.2 kg

DRUGS (4)
  1. INFLIXIMAB [Suspect]
     Indication: DRUG EXPOSURE DURING PREGNANCY
     Route: 064
  2. INFLIXIMAB [Suspect]
     Route: 064
  3. INFLIXIMAB [Suspect]
     Route: 064
  4. AZATHIOPRINE [Concomitant]

REACTIONS (1)
  - NEONATAL ASPIRATION [None]
